FAERS Safety Report 15868907 (Version 2)
Quarter: 2019Q1

REPORT INFORMATION
  Report Type: Report from Study
  Country: AT (occurrence: AT)
  Receive Date: 20190125
  Receipt Date: 20190213
  Transmission Date: 20190417
  Serious: Yes (Other)
  Sender: FDA-Public Use
  Company Number: AT-GLAXOSMITHKLINE-AT2019009219

PATIENT
  Age: 22 Year
  Sex: Male
  Weight: 80 kg

DRUGS (19)
  1. WELLBUTRIN [Suspect]
     Active Substance: BUPROPION HYDROCHLORIDE
     Indication: PRODUCT USED FOR UNKNOWN INDICATION
     Dosage: 150 MG, UNK
     Route: 065
     Dates: start: 20180519, end: 20180521
  2. CISORDINOL [Suspect]
     Active Substance: ZUCLOPENTHIXOL
     Indication: PRODUCT USED FOR UNKNOWN INDICATION
     Dosage: 20 MG, UNK
     Route: 065
     Dates: start: 20180519, end: 20180521
  3. TRUXAL [Suspect]
     Active Substance: CHLORPROTHIXENE
     Indication: PRODUCT USED FOR UNKNOWN INDICATION
     Dosage: 150 MG, UNK
     Route: 065
     Dates: start: 20180520, end: 20180520
  4. LORAZEPAM. [Suspect]
     Active Substance: LORAZEPAM
     Dosage: 5.5 MG, UNK
     Route: 065
     Dates: start: 20180520, end: 20180520
  5. LORAZEPAM. [Suspect]
     Active Substance: LORAZEPAM
     Dosage: 7.25 MG, UNK
     Route: 065
     Dates: start: 20180521, end: 20180521
  6. CISORDINOL [Suspect]
     Active Substance: ZUCLOPENTHIXOL
     Dosage: 25 MG, UNK
     Route: 065
     Dates: start: 20180525, end: 20180525
  7. LORAZEPAM. [Suspect]
     Active Substance: LORAZEPAM
     Indication: PRODUCT USED FOR UNKNOWN INDICATION
     Dosage: 5 MG, UNK
     Route: 065
     Dates: start: 20180518, end: 20180518
  8. LORAZEPAM. [Suspect]
     Active Substance: LORAZEPAM
     Dosage: 4.5 MG, UNK
     Route: 065
     Dates: start: 20180519, end: 20180519
  9. CISORDINOL [Suspect]
     Active Substance: ZUCLOPENTHIXOL
     Dosage: 65 MG, UNK
     Route: 065
     Dates: start: 20180524, end: 20180524
  10. TRUXAL [Suspect]
     Active Substance: CHLORPROTHIXENE
     Dosage: 150 MG, UNK
     Route: 065
     Dates: start: 20180522, end: 20180522
  11. LORAZEPAM. [Suspect]
     Active Substance: LORAZEPAM
     Dosage: 3.75 MG, UNK
     Route: 065
     Dates: start: 20180522, end: 20180522
  12. LORAZEPAM. [Suspect]
     Active Substance: LORAZEPAM
     Dosage: 1.25 UNK, UNK
     Route: 065
     Dates: start: 20180523, end: 20180523
  13. CISORDINOL [Suspect]
     Active Substance: ZUCLOPENTHIXOL
     Dosage: 55 MG, UNK
     Route: 065
     Dates: start: 20180523, end: 20180523
  14. ZYPREXA [Suspect]
     Active Substance: OLANZAPINE
     Dosage: 30 MG, UNK
     Route: 065
     Dates: start: 20180520
  15. TRUXAL [Suspect]
     Active Substance: CHLORPROTHIXENE
     Dosage: 50 MG, UNK
     Route: 065
     Dates: start: 20180523, end: 20180523
  16. ZYPREXA [Suspect]
     Active Substance: OLANZAPINE
     Indication: PRODUCT USED FOR UNKNOWN INDICATION
     Dosage: 10 MG, UNK
     Route: 065
     Dates: start: 20180518, end: 20180518
  17. ZYPREXA [Suspect]
     Active Substance: OLANZAPINE
     Dosage: 20 MG, UNK
     Route: 065
     Dates: start: 20180519, end: 20180519
  18. CISORDINOL [Suspect]
     Active Substance: ZUCLOPENTHIXOL
     Dosage: 100 MG, UNK
     Route: 065
     Dates: start: 20180522, end: 20180522
  19. TEMESTA [LORAZEPAM] [Suspect]
     Active Substance: LORAZEPAM
     Indication: PRODUCT USED FOR UNKNOWN INDICATION
     Dosage: 5 MG, UNK
     Route: 065
     Dates: end: 20180517

REACTIONS (2)
  - Urine output decreased [Recovered/Resolved]
  - Incontinence [Recovered/Resolved]

NARRATIVE: CASE EVENT DATE: 20180521
